FAERS Safety Report 15035741 (Version 1)
Quarter: 2018Q2

REPORT INFORMATION
  Report Type: Spontaneous
  Country: CH (occurrence: CH)
  Receive Date: 20180620
  Receipt Date: 20180620
  Transmission Date: 20180711
  Serious: Yes (Hospitalization, Other)
  Sender: FDA-Public Use
  Company Number: CH-PFIZER INC-2018245232

PATIENT
  Age: 77 Year
  Sex: Male

DRUGS (3)
  1. ASPIRIN CARDIO [Concomitant]
     Active Substance: ASPIRIN
     Dosage: 100MG 1X/DAY
     Route: 048
  2. SUTENT [Suspect]
     Active Substance: SUNITINIB MALATE
     Indication: METASTASES TO LUNG
  3. SUTENT [Suspect]
     Active Substance: SUNITINIB MALATE
     Indication: METASTASES TO THE MEDIASTINUM
     Dosage: 50MG 1X/DAY
     Route: 048
     Dates: start: 201804, end: 20180517

REACTIONS (5)
  - Stomatitis [Recovering/Resolving]
  - Skin exfoliation [Recovering/Resolving]
  - Thrombocytopenia [Recovering/Resolving]
  - Contusion [Unknown]
  - Asthenia [Recovering/Resolving]

NARRATIVE: CASE EVENT DATE: 20180517
